FAERS Safety Report 5017890-4 (Version None)
Quarter: 2006Q2

REPORT INFORMATION
  Report Type: 
  Country: None (occurrence: None)
  Receive Date: 20060602
  Receipt Date: 20060602
  Transmission Date: 20061013
  Serious: Yes (Life-Threatening, Hospitalization, Disabling)
  Sender: FDA-Public Use
  Company Number: None

PATIENT
  Age: 64 Year
  Sex: Female
  Weight: 49.8957 kg

DRUGS (1)
  1. REFLUDAN [Suspect]
     Indication: ANTICOAGULANT THERAPY
     Dosage: 21 MG IV PUSH ONE TIME ORDER IV BOLUS
     Route: 040
     Dates: start: 20060531, end: 20060531

REACTIONS (4)
  - ATRIAL FIBRILLATION [None]
  - CARDIO-RESPIRATORY ARREST [None]
  - DYSPNOEA [None]
  - PRURITUS [None]
